FAERS Safety Report 8897427 (Version 1)
Quarter: 2012Q4

REPORT INFORMATION
  Report Type: Spontaneous
  Country: GB (occurrence: None)
  Receive Date: 20121102
  Receipt Date: 20121102
  Transmission Date: 20130627
  Serious: Yes (Death, Hospitalization)
  Sender: FDA-Public Use
  Company Number: 2012-01573

PATIENT
  Age: 38 Year
  Sex: Female

DRUGS (18)
  1. SIMVASTATIN [Suspect]
     Indication: DRUG USE FOR UNKNOWN INDICATION
     Dosage: (40 mg, 1 in 1 D)
  2. CLOZAPINE [Suspect]
     Route: 048
     Dates: start: 20081209
  3. CLOZAPINE [Suspect]
     Route: 048
  4. INSULIN GLULISINE (APIDRA SOLOSTAR) (UNKNOWN) [Concomitant]
  5. CHLORPHENIRAMINE (CHLORPHENAMINE) (UNKNOWN) [Concomitant]
  6. MEDROXYPROGESTERONE ACETATE (DEPO-PROVERA) (UNKNOWN) [Concomitant]
  7. DIAZEPAM (UNKNOWN) [Concomitant]
  8. DIHYDROCODEINE (UNKNOWN) [Concomitant]
  9. FRUSEMIDE (FUROSEMIDE) (UNKNOWN) [Concomitant]
  10. LEVOTHYROXINE (UNKNOWN) [Concomitant]
  11. LEVOTHYROXINE (UNKNOWN) [Concomitant]
  12. LYMECYCLINE (UNKNOWN) [Concomitant]
  13. METFORMIN (UNKNOWN) [Concomitant]
  14. OMEPRAZOLE (UNKNOWN) [Concomitant]
  15. PARACETAMOL (UNKNOWN) [Concomitant]
  16. SERTRALINE (UNKNOWN) (SERTRALINE) [Concomitant]
  17. PIPERACILLIN SODIUM + TAZOBACTAM SODIUM (TAZOCIN) (UNKNOWN) [Concomitant]
  18. INSULIN GLARGINE (LANTUS SOLOSTAR) (UNKNOWN) [Concomitant]

REACTIONS (16)
  - Malaise [None]
  - Joint swelling [None]
  - Emotional disorder [None]
  - Endocarditis [None]
  - Infection [None]
  - Arthralgia [None]
  - Dyspnoea [None]
  - Lymphoma [None]
  - Mass [None]
  - Inflammatory marker increased [None]
  - Neutrophil count increased [None]
  - Platelet count increased [None]
  - White blood cell count increased [None]
  - Furuncle [None]
  - Electrocardiogram QT prolonged [None]
  - Condition aggravated [None]
